FAERS Safety Report 6961722-1 (Version None)
Quarter: 2010Q3

REPORT INFORMATION
  Report Type: 
  Country: None (occurrence: None)
  Receive Date: 20100901
  Receipt Date: 20100826
  Transmission Date: 20110219
  Serious: Yes (Death, Hospitalization)
  Sender: FDA-Public Use
  Company Number: PHHY2010IE55459

PATIENT
  Sex: Male
  Weight: 72 kg

DRUGS (9)
  1. ACZ885 ACZ+ [Suspect]
     Indication: TUMOUR NECROSIS FACTOR RECEPTOR-ASSOCIATED PERIODIC SYNDROME
     Dosage: EVERY 4 WEEKS
     Route: 058
     Dates: start: 20100511
  2. ACZ885 ACZ+ [Suspect]
     Dosage: EVERY 2 WEEKS
     Route: 058
     Dates: end: 20100820
  3. PREDNISOLONE [Suspect]
  4. ENBREL [Suspect]
  5. DIALYSIS [Concomitant]
  6. SEVELAMER [Concomitant]
  7. ALFACALCIDOL [Concomitant]
  8. PREGABALIN [Concomitant]
  9. OXYCONTIN [Concomitant]

REACTIONS (22)
  - ABDOMINAL PAIN [None]
  - AMYLOIDOSIS [None]
  - CARDIAC ARREST [None]
  - CARDIAC TAMPONADE [None]
  - CHEST PAIN [None]
  - DISEASE PROGRESSION [None]
  - DYSPNOEA [None]
  - GRANULOMA [None]
  - INFLAMMATION [None]
  - JOINT SWELLING [None]
  - MYALGIA [None]
  - NAUSEA [None]
  - PERICARDITIS TUBERCULOUS [None]
  - PERITONEAL TUBERCULOSIS [None]
  - PLEURAL EFFUSION [None]
  - PLEURISY [None]
  - PULMONARY TUBERCULOSIS [None]
  - PYREXIA [None]
  - RENAL FAILURE [None]
  - SEROSITIS [None]
  - SINUS TACHYCARDIA [None]
  - TUMOUR NECROSIS FACTOR RECEPTOR-ASSOCIATED PERIODIC SYNDROME [None]
